FAERS Safety Report 25571819 (Version 2)
Quarter: 2025Q3

REPORT INFORMATION
  Report Type: Spontaneous
  Country: JP (occurrence: JP)
  Receive Date: 20250717
  Receipt Date: 20250903
  Transmission Date: 20251020
  Serious: Yes (Other)
  Sender: PFIZER
  Company Number: JP-PFIZER INC-202500141319

PATIENT
  Age: 58 Year
  Sex: Female

DRUGS (4)
  1. ELREXFIO [Suspect]
     Active Substance: ELRANATAMAB-BCMM
     Route: 058
  2. ELREXFIO [Suspect]
     Active Substance: ELRANATAMAB-BCMM
     Route: 058
  3. ELREXFIO [Suspect]
     Active Substance: ELRANATAMAB-BCMM
     Route: 058
  4. ELREXFIO [Suspect]
     Active Substance: ELRANATAMAB-BCMM
     Route: 058

REACTIONS (3)
  - Cytomegalovirus infection reactivation [Recovered/Resolved]
  - Cytokine release syndrome [Recovered/Resolved]
  - Erythema [Unknown]
